FAERS Safety Report 7797619-7 (Version None)
Quarter: 2011Q4

REPORT INFORMATION
  Report Type: 
  Country: None (occurrence: None)
  Receive Date: 20111003
  Receipt Date: 20110929
  Transmission Date: 20120403
  Serious: Yes (Other)
  Sender: FDA-Public Use
  Company Number: 2011SP046104

PATIENT

DRUGS (5)
  1. ROCURONIUM BROMIDE [Suspect]
     Indication: HYPOTONIA
     Dosage: IV
     Route: 042
  2. PROPOFOL [Suspect]
     Indication: PRODUCT USED FOR UNKNOWN INDICATION
  3. SEVOFLURANE [Suspect]
     Indication: PRODUCT USED FOR UNKNOWN INDICATION
  4. FENTANYL [Suspect]
     Indication: PRODUCT USED FOR UNKNOWN INDICATION
  5. ULTIVA [Suspect]
     Indication: PRODUCT USED FOR UNKNOWN INDICATION

REACTIONS (2)
  - RHABDOMYOLYSIS [None]
  - HAEMATURIA [None]
